FAERS Safety Report 4563984-7 (Version None)
Quarter: 2005Q1

REPORT INFORMATION
  Report Type: 
  Country: None (occurrence: None)
  Receive Date: 20050128
  Receipt Date: 20050120
  Transmission Date: 20050727
  Serious: Yes (Hospitalization)
  Sender: FDA-Public Use
  Company Number: US-JNJFOC-20041103290

PATIENT
  Sex: Female

DRUGS (6)
  1. MOTRIN [Suspect]
     Indication: PAIN
  2. AVAPRO [Concomitant]
     Dosage: 300 MG
  3. PHENYTOIN [Concomitant]
     Dosage: 400 MG
  4. AMITRIPTYLINE HCL [Concomitant]
     Dosage: 75 MG
  5. ACTONEL [Concomitant]
     Dosage: 35 MG WEEKLY
  6. HYDROCHLOROTHIAZIDE [Concomitant]
     Dosage: 12.5 MG

REACTIONS (2)
  - CEREBRAL HAEMORRHAGE [None]
  - LOSS OF CONSCIOUSNESS [None]
